FAERS Safety Report 6754085-8 (Version None)
Quarter: 2010Q2

REPORT INFORMATION
  Report Type: 
  Country: None (occurrence: None)
  Receive Date: 20100601
  Receipt Date: 20100517
  Transmission Date: 20101027
  Serious: Yes (Death)
  Sender: FDA-Public Use
  Company Number: 2010001906

PATIENT
  Age: 54 Year
  Sex: Male

DRUGS (1)
  1. TARCEVA [Suspect]
     Indication: PANCREATIC CARCINOMA
     Dosage: (100 MG,QD),ORAL
     Route: 048
     Dates: start: 20100211, end: 20100215

REACTIONS (1)
  - HAEMORRHAGE [None]
